FAERS Safety Report 10209132 (Version 1)
Quarter: 2014Q2

REPORT INFORMATION
  Report Type: Spontaneous
  Country: US (occurrence: US)
  Receive Date: 20140530
  Receipt Date: 20140530
  Transmission Date: 20141212
  Serious: No
  Sender: FDA-Public Use
  Company Number: US-GILEAD-2014-0103698

PATIENT
  Sex: Female

DRUGS (3)
  1. LETAIRIS [Suspect]
     Indication: PRODUCT USED FOR UNKNOWN INDICATION
     Dosage: 10 MG, QD
     Route: 065
     Dates: start: 20140328
  2. LETAIRIS [Suspect]
     Dates: start: 20130321
  3. REMODULIN [Concomitant]

REACTIONS (4)
  - Syncope [Unknown]
  - Condition aggravated [Unknown]
  - Bronchitis [Unknown]
  - Nasopharyngitis [Unknown]
